FAERS Safety Report 8538876-9 (Version None)
Quarter: 2012Q3

REPORT INFORMATION
  Report Type: 
  Country: None (occurrence: None)
  Receive Date: 20120726
  Receipt Date: 20120718
  Transmission Date: 20120928
  Serious: Yes (Hospitalization)
  Sender: FDA-Public Use
  Company Number: JP-VERTEX PHARMACEUTICALS INC.-AE-2012-010828

PATIENT
  Age: 62 Year
  Sex: Male

DRUGS (11)
  1. PEGINTERFERON ALFA-2B [Concomitant]
     Route: 058
     Dates: start: 20120516, end: 20120522
  2. RIBAVIRIN [Concomitant]
     Route: 048
     Dates: start: 20120529
  3. PEGINTERFERON ALFA-2B [Concomitant]
     Route: 058
     Dates: start: 20120523
  4. RIBAVIRIN [Concomitant]
     Route: 048
     Dates: start: 20120516, end: 20120528
  5. AMLODIPINE BESYLATE [Concomitant]
     Route: 048
  6. URSO 250 [Concomitant]
     Route: 048
     Dates: end: 20120606
  7. CANDESARTAN CILEXETIL [Concomitant]
     Route: 048
  8. NIZATIDINE [Concomitant]
     Route: 048
  9. TELAVIC (TELAPREVIR) [Suspect]
     Indication: HEPATITIS C
     Route: 048
     Dates: start: 20120516, end: 20120523
  10. TELAVIC (TELAPREVIR) [Suspect]
     Route: 048
     Dates: start: 20120524
  11. ASPIRIN [Concomitant]
     Route: 048

REACTIONS (2)
  - HYPERURICAEMIA [None]
  - RENAL DISORDER [None]
